FAERS Safety Report 5836801-2 (Version None)
Quarter: 2008Q3

REPORT INFORMATION
  Report Type: 
  Country: None (occurrence: None)
  Receive Date: 20080807
  Receipt Date: 20080724
  Transmission Date: 20090109
  Serious: Yes (Hospitalization)
  Sender: FDA-Public Use
  Company Number: US-ELI_LILLY_AND_COMPANY-US200805000746

PATIENT
  Sex: Female
  Weight: 60.771 kg

DRUGS (3)
  1. EXENATIDE [Suspect]
     Indication: DRUG LEVEL
     Dosage: 10 UG, DAILY (1/D)
     Route: 058
     Dates: start: 20080327, end: 20080327
  2. EXENATIDE LONG ACTING RELEASE [Suspect]
     Indication: DRUG LEVEL
     Dosage: 10 MG, DAILY (1/D)
     Route: 058
     Dates: start: 20080328, end: 20080328
  3. ALEVE [Concomitant]
     Indication: HEADACHE
     Dosage: UNK, WEEKLY (1/W)

REACTIONS (1)
  - EROSIVE OESOPHAGITIS [None]
